FAERS Safety Report 15356100 (Version 1)
Quarter: 2018Q3

REPORT INFORMATION
  Report Type: Spontaneous
  Country: FR (occurrence: FR)
  Receive Date: 20180906
  Receipt Date: 20180906
  Transmission Date: 20181010
  Serious: Yes (Other)
  Sender: FDA-Public Use
  Company Number: FR-PFIZER INC-2018345278

PATIENT
  Age: 13 Year
  Sex: Female
  Weight: 52 kg

DRUGS (5)
  1. CODEINE [Suspect]
     Active Substance: CODEINE
     Indication: POISONING DELIBERATE
     Dosage: 6 DF, UNK
     Route: 048
     Dates: start: 20180626, end: 20180626
  2. XANAX [Suspect]
     Active Substance: ALPRAZOLAM
     Indication: POISONING DELIBERATE
     Dosage: 6 DF, UNK
     Route: 048
     Dates: start: 20180626, end: 20180626
  3. PARACETAMOL [Suspect]
     Active Substance: ACETAMINOPHEN
     Indication: POISONING DELIBERATE
     Dosage: 6 DF, UNK
     Route: 048
     Dates: start: 20180626, end: 20180626
  4. PARACETAMOL [Suspect]
     Active Substance: ACETAMINOPHEN
     Dosage: 3 G, UNK
     Route: 048
     Dates: start: 20180626, end: 20180626
  5. CODEINE [Suspect]
     Active Substance: CODEINE
     Dosage: 3 DF, UNK
     Route: 048
     Dates: start: 20180626, end: 20180626

REACTIONS (7)
  - Somnolence [Recovered/Resolved]
  - Poisoning deliberate [Unknown]
  - Vomiting [Recovered/Resolved]
  - Intentional overdose [Recovered/Resolved]
  - Nausea [Recovered/Resolved]
  - Vertigo [Recovered/Resolved]
  - Headache [Recovered/Resolved]

NARRATIVE: CASE EVENT DATE: 20180626
